FAERS Safety Report 14783268 (Version 5)
Quarter: 2022Q2

REPORT INFORMATION
  Report Type: Spontaneous
  Country: ES (occurrence: ES)
  Receive Date: 20180420
  Receipt Date: 20220512
  Transmission Date: 20220721
  Serious: Yes (Other)
  Sender: FDA-Public Use
  Company Number: ES-AUROBINDO-AUR-APL-2018-020575

PATIENT
  Age: 61 Year
  Sex: Female
  Weight: 100 kg

DRUGS (6)
  1. VALSARTAN [Suspect]
     Active Substance: VALSARTAN
     Indication: Hypertension
     Dosage: 160 MILLIGRAM, ONCE A DAY
     Route: 065
  2. AMIODARONE HYDROCHLORIDE [Suspect]
     Active Substance: AMIODARONE HYDROCHLORIDE
     Indication: Arrhythmia
     Dosage: 200 MILLIGRAM, CYCLICAL (MONDAY, WEDNESDAY AND FRIDAY)
     Route: 048
     Dates: start: 2017
  3. AMIODARONE HYDROCHLORIDE [Suspect]
     Active Substance: AMIODARONE HYDROCHLORIDE
     Dosage: 200 MILLIGRAM, CYCLICAL (MONDAY, WEDNESDAY AND FRIDAY)
     Route: 048
     Dates: start: 2017
  4. ALPRAZOLAM [Concomitant]
     Active Substance: ALPRAZOLAM
     Indication: Nervousness
     Dosage: UNK
     Route: 065
  5. BISOPROLOL FUMARATE [Concomitant]
     Active Substance: BISOPROLOL FUMARATE
     Indication: Cardiac disorder
     Dosage: 1.5 TABLETS (DOSE 2.5 MG )/ DAY ()
     Route: 065
  6. SINTROM [Concomitant]
     Active Substance: ACENOCOUMAROL
     Indication: Coagulopathy
     Dosage: 4 MG AT VARIABLE DOSAGE
     Route: 065

REACTIONS (3)
  - Goitre [Not Recovered/Not Resolved]
  - Choking sensation [Not Recovered/Not Resolved]
  - Condition aggravated [Not Recovered/Not Resolved]
